FAERS Safety Report 18725279 (Version 3)
Quarter: 2021Q2

REPORT INFORMATION
  Report Type: Report from Study
  Country: DE (occurrence: DE)
  Receive Date: 20210111
  Receipt Date: 20210603
  Transmission Date: 20210717
  Serious: Yes (Death, Hospitalization, Other)
  Sender: FDA-Public Use
  Company Number: DE-INCYTE CORPORATION-2020IN013075

PATIENT

DRUGS (8)
  1. ATORVASTATIN [Concomitant]
     Active Substance: ATORVASTATIN
     Indication: BLOOD CHOLESTEROL INCREASED
     Dosage: 43.3 MG, QD
     Route: 048
     Dates: start: 20190101
  2. ALLOPURINOL. [Concomitant]
     Active Substance: ALLOPURINOL
     Indication: BLOOD URIC ACID INCREASED
     Dosage: 100 MG, QD
     Route: 048
     Dates: start: 20190101
  3. PANTOPRAZOLE [Concomitant]
     Active Substance: PANTOPRAZOLE
     Indication: PROPHYLAXIS
     Dosage: 80 MG, QD (PER DAY)
     Route: 048
     Dates: start: 20190101
  4. INCB018424 [Suspect]
     Active Substance: RUXOLITINIB
     Indication: MYELOFIBROSIS
     Dosage: 20 MG, PER DAY
     Route: 048
     Dates: start: 20190304
  5. FUROSEMIDE. [Concomitant]
     Active Substance: FUROSEMIDE
     Indication: OEDEMA
     Dosage: 200 MG, QD
     Route: 048
     Dates: start: 20190101
  6. L?THYROXINE [LEVOTHYROXINE] [Concomitant]
     Active Substance: LEVOTHYROXINE
     Indication: HYPOTHYROIDISM
     Dosage: 75 UG, QD
     Route: 048
     Dates: start: 20190101
  7. INCB018424 [Suspect]
     Active Substance: RUXOLITINIB
     Dosage: 20 MG, PER DAY
     Route: 048
     Dates: start: 20200713
  8. METOPROLOL SUCCINATE. [Concomitant]
     Active Substance: METOPROLOL SUCCINATE
     Indication: HYPERTENSION
     Dosage: 47.5 MG, QD
     Route: 048
     Dates: start: 20190101

REACTIONS (15)
  - Sepsis [Fatal]
  - Concomitant disease aggravated [Unknown]
  - Haemolysis [Unknown]
  - Asthenia [Fatal]
  - N-terminal prohormone brain natriuretic peptide increased [Unknown]
  - General physical health deterioration [Recovered/Resolved]
  - Aortic valve stenosis [Unknown]
  - Blood albumin decreased [Unknown]
  - Infection susceptibility increased [Recovered/Resolved with Sequelae]
  - Infection [Unknown]
  - Cardiac failure [Fatal]
  - Blood lactate dehydrogenase increased [Unknown]
  - Multiple organ dysfunction syndrome [Fatal]
  - Haptoglobin decreased [Unknown]
  - Pain [Unknown]

NARRATIVE: CASE EVENT DATE: 201909
